FAERS Safety Report 4678865-8 (Version None)
Quarter: 2005Q2

REPORT INFORMATION
  Report Type: 
  Country: None (occurrence: None)
  Receive Date: 20050531
  Receipt Date: 20050516
  Transmission Date: 20051028
  Serious: Yes (Other)
  Sender: FDA-Public Use
  Company Number: 2005075314

PATIENT
  Sex: Female

DRUGS (5)
  1. BENADRYL [Suspect]
     Indication: ANXIETY
     Dosage: 6 DURING THE DAY/12 AT BEDTIME, ORAL
     Route: 048
     Dates: start: 20020101
  2. BENADRYL [Suspect]
     Indication: ANXIETY
     Dosage: 6 DURING THE DAY/12 AT BEDTIME, ORAL
     Route: 048
     Dates: start: 20020101
  3. RANITIDINE HYDROCHLORIDE [Concomitant]
  4. METOCLOPRAMINE (METOCLOPRAMIDE) [Concomitant]
  5. CISAPRIDE (CISAPRIDE) [Concomitant]

REACTIONS (7)
  - ANXIETY [None]
  - BRUXISM [None]
  - DRUG DEPENDENCE [None]
  - MEMORY IMPAIRMENT [None]
  - MENOPAUSE [None]
  - OVERDOSE [None]
  - SELF-MEDICATION [None]
